FAERS Safety Report 11540314 (Version 1)
Quarter: 2015Q3

REPORT INFORMATION
  Report Type: Spontaneous
  Country: US (occurrence: US)
  Receive Date: 20150923
  Receipt Date: 20150923
  Transmission Date: 20151125
  Serious: No
  Sender: FDA-Public Use
  Company Number: US-BEH-2014043458

PATIENT
  Sex: Female
  Weight: 132 kg

DRUGS (25)
  1. PREDNISONE. [Concomitant]
     Active Substance: PREDNISONE
  2. SODIUM CHLORIDE. [Concomitant]
     Active Substance: SODIUM CHLORIDE
  3. PROMETHAZINE [Concomitant]
     Active Substance: PROMETHAZINE\PROMETHAZINE HYDROCHLORIDE
  4. ZOLOFT [Concomitant]
     Active Substance: SERTRALINE HYDROCHLORIDE
  5. ADVAIR HFA [Concomitant]
     Active Substance: FLUTICASONE PROPIONATE\SALMETEROL XINAFOATE
  6. TOPROL XL [Concomitant]
     Active Substance: METOPROLOL SUCCINATE
  7. OXYGEN. [Concomitant]
     Active Substance: OXYGEN
  8. ALL OTHER THERAPEUTIC PRODUCTS [Concomitant]
     Active Substance: UNSPECIFIED INGREDIENT
  9. PROTONIX [Concomitant]
     Active Substance: PANTOPRAZOLE SODIUM
  10. SOMA [Concomitant]
     Active Substance: CARISOPRODOL
  11. RITUXAN [Concomitant]
     Active Substance: RITUXIMAB
  12. ACETAMINOPHEN. [Concomitant]
     Active Substance: ACETAMINOPHEN
  13. LMX [Concomitant]
     Active Substance: LIDOCAINE
  14. MIRAPEX [Concomitant]
     Active Substance: PRAMIPEXOLE DIHYDROCHLORIDE
  15. DILAUDID [Concomitant]
     Active Substance: HYDROMORPHONE HYDROCHLORIDE
  16. PRIVIGEN [Suspect]
     Active Substance: HUMAN IMMUNOGLOBULIN G
     Indication: IMMUNODEFICIENCY COMMON VARIABLE
     Dosage: OVER TWO HOURS
     Route: 042
  17. HEPARIN [Concomitant]
     Active Substance: HEPARIN SODIUM
  18. KLONOPIN [Concomitant]
     Active Substance: CLONAZEPAM
  19. TOPAMAX [Concomitant]
     Active Substance: TOPIRAMATE
  20. DUONEB [Concomitant]
     Active Substance: ALBUTEROL SULFATE\IPRATROPIUM BROMIDE
  21. AMBIEN [Concomitant]
     Active Substance: ZOLPIDEM TARTRATE
  22. EPIPEN [Concomitant]
     Active Substance: EPINEPHRINE
  23. METHOTREXATE [Concomitant]
     Active Substance: METHOTREXATE
  24. DIPHENHYDRAMINE. [Concomitant]
     Active Substance: DIPHENHYDRAMINE
  25. DURAGESIC [Concomitant]
     Active Substance: FENTANYL

REACTIONS (1)
  - Urinary tract infection [Unknown]
